FAERS Safety Report 18941723 (Version 1)
Quarter: 2021Q1

REPORT INFORMATION
  Report Type: Spontaneous
  Country: US (occurrence: US)
  Receive Date: 20210225
  Receipt Date: 20210225
  Transmission Date: 20210420
  Serious: Yes (Life-Threatening, Other)
  Sender: FDA-Public Use
  Company Number: US-BRACCO-2020US04695

PATIENT
  Age: 51 Year
  Sex: Female

DRUGS (2)
  1. ISOVUE 370 [Suspect]
     Active Substance: IOPAMIDOL
     Indication: DIAGNOSTIC PROCEDURE
     Dosage: 2 ML, SINGLE
  2. RANOLAZINE. [Concomitant]
     Active Substance: RANOLAZINE

REACTIONS (2)
  - Contraindicated product administered [Recovered/Resolved]
  - Anaphylactic reaction [Recovered/Resolved]
